FAERS Safety Report 9553501 (Version 1)
Quarter: 2013Q3

REPORT INFORMATION
  Report Type: Spontaneous
  Country: CA (occurrence: CA)
  Receive Date: 20130925
  Receipt Date: 20130925
  Transmission Date: 20140515
  Serious: Yes (Other)
  Sender: FDA-Public Use
  Company Number: CA-PFIZER INC-2013273622

PATIENT
  Age: 49 Year
  Sex: Female

DRUGS (3)
  1. SOMAVERT [Suspect]
     Dosage: 20 MG, 1X/DAY
     Dates: start: 2011
  2. SOMAVERT [Suspect]
     Dosage: 40 MG, ALTERNATE DAY AT NIGHT
     Dates: start: 201304
  3. SANDOSTATIN LAR [Concomitant]
     Dosage: 40 MG, MONTHLY

REACTIONS (4)
  - Neoplasm [Unknown]
  - Weight increased [Not Recovered/Not Resolved]
  - Headache [Not Recovered/Not Resolved]
  - Abdominal distension [Not Recovered/Not Resolved]
